FAERS Safety Report 8130052-7 (Version None)
Quarter: 2012Q1

REPORT INFORMATION
  Report Type: 
  Country: None (occurrence: None)
  Receive Date: 20120210
  Receipt Date: 20120128
  Transmission Date: 20120608
  Serious: Yes (Other)
  Sender: FDA-Public Use
  Company Number: CHPA2012US002355

PATIENT
  Age: 67 Year
  Sex: Female

DRUGS (2)
  1. EXCEDRIN MIGRAINE CAPLETS [Suspect]
     Indication: MIGRAINE
     Dosage: 2 DF, UNK
     Route: 048
  2. GABAPENTIN [Concomitant]
     Indication: PAIN
     Route: 048

REACTIONS (3)
  - PAIN [None]
  - DYSKINESIA [None]
  - NEOPLASM MALIGNANT [None]
